FAERS Safety Report 11804468 (Version 1)
Quarter: 2015Q4

REPORT INFORMATION
  Report Type: Report from Study
  Country: US (occurrence: US)
  Receive Date: 20151204
  Receipt Date: 20151204
  Transmission Date: 20160305
  Serious: No
  Sender: FDA-Public Use
  Company Number: US-CELGENEUS-USA-2015106714

PATIENT

DRUGS (2)
  1. REVLIMID [Suspect]
     Active Substance: LENALIDOMIDE
     Indication: PLASMA CELL MYELOMA
     Route: 048
  2. DEXAMETHASONE. [Concomitant]
     Active Substance: DEXAMETHASONE
     Indication: PLASMA CELL MYELOMA
     Route: 065

REACTIONS (12)
  - Tremor [Unknown]
  - Pain [Unknown]
  - Toxicity to various agents [Unknown]
  - Dysgeusia [Unknown]
  - Platelet count decreased [Unknown]
  - Dizziness [Unknown]
  - Mood altered [Unknown]
  - Abnormal behaviour [Unknown]
  - Fear [Unknown]
  - Paraesthesia [Unknown]
  - Neutrophil count decreased [Unknown]
  - Fatigue [Unknown]
